FAERS Safety Report 8611478-1 (Version None)
Quarter: 2012Q3

REPORT INFORMATION
  Report Type: 
  Country: None (occurrence: None)
  Receive Date: 20120822
  Receipt Date: 20120816
  Transmission Date: 20120928
  Serious: Yes (Other)
  Sender: FDA-Public Use
  Company Number: US-PFIZER INC-2012201260

PATIENT
  Age: 48 Year
  Sex: Female

DRUGS (8)
  1. PLAVIX [Concomitant]
     Dosage: UNK
  2. DEXAMETHASONE [Concomitant]
     Dosage: UNK
  3. CARVEDILOL [Concomitant]
     Dosage: UNK
  4. ATORVASTATIN [Concomitant]
     Dosage: UNK
  5. BUSPIRONE [Concomitant]
     Dosage: UNK
  6. FUROSEMIDE [Concomitant]
     Dosage: UNK
  7. REVATIO [Suspect]
     Indication: PULMONARY HYPERTENSION
     Dosage: 20 MG, 3X/DAY
     Route: 048
     Dates: start: 20111101
  8. CELEBREX [Concomitant]
     Dosage: UNK

REACTIONS (2)
  - MENTAL IMPAIRMENT [None]
  - SOMNOLENCE [None]
